FAERS Safety Report 9270787 (Version 3)
Quarter: 2014Q3

REPORT INFORMATION
  Report Type: Spontaneous
  Country: US (occurrence: US)
  Receive Date: 20130503
  Receipt Date: 20140711
  Transmission Date: 20150326
  Serious: Yes (Hospitalization, Other)
  Sender: FDA-Public Use
  Company Number: US-009507513-1305USA000194

PATIENT
  Sex: Female
  Weight: 72.56 kg

DRUGS (2)
  1. NUVARING [Suspect]
     Active Substance: ETHINYL ESTRADIOL\ETONOGESTREL
     Indication: CONTRACEPTION
     Dosage: UNK
     Route: 067
     Dates: start: 2005, end: 20120510
  2. PREDNISONE. [Concomitant]
     Active Substance: PREDNISONE
     Indication: CONGENITAL APLASTIC ANAEMIA
     Dosage: UNK
     Dates: start: 198601

REACTIONS (18)
  - Gastrooesophageal reflux disease [Unknown]
  - Cervical dysplasia [Unknown]
  - Pain in extremity [Unknown]
  - Gestational diabetes [Recovered/Resolved]
  - Hypophagia [Unknown]
  - Maternal exposure before pregnancy [Unknown]
  - Device expulsion [Recovered/Resolved]
  - Vomiting in pregnancy [Unknown]
  - Adrenal insufficiency [Unknown]
  - Panic attack [Unknown]
  - Pulmonary embolism [Recovering/Resolving]
  - Haematochezia [Unknown]
  - Musculoskeletal chest pain [Recovering/Resolving]
  - Deep vein thrombosis [Unknown]
  - Dizziness [Unknown]
  - Chest pain [Recovered/Resolved]
  - Generalised anxiety disorder [Unknown]
  - Palpitations [Unknown]

NARRATIVE: CASE EVENT DATE: 20060413
